FAERS Safety Report 8332702-9 (Version None)
Quarter: 2012Q2

REPORT INFORMATION
  Report Type: 
  Country: None (occurrence: None)
  Receive Date: 20120503
  Receipt Date: 20120208
  Transmission Date: 20120825
  Serious: No
  Sender: FDA-Public Use
  Company Number: US-MYLANLABS-2012S1003254

PATIENT
  Age: 64 Year
  Sex: Female

DRUGS (3)
  1. TRAMADOL HCL [Concomitant]
     Indication: NEURALGIA
     Route: 065
  2. GABAPENTIN [Concomitant]
     Indication: NEURALGIA
     Dosage: 200MG
     Route: 065
  3. MORPHINE [Suspect]
     Indication: NEURALGIA
     Route: 065

REACTIONS (1)
  - AGGRESSION [None]
